FAERS Safety Report 8614067 (Version 2)
Quarter: 2012Q4

REPORT INFORMATION
  Report Type: Spontaneous
  Country: DE (occurrence: None)
  Receive Date: 20120531
  Receipt Date: 20120913
  Transmission Date: 20130627
  Serious: Yes (Hospitalization, Other)
  Sender: FDA-Public Use
  Company Number: DE-021797

PATIENT
  Age: 73 Year
  Sex: Male

DRUGS (1)
  1. CHLORAMBUCIL [Suspect]
     Indication: CHRONIC LYMPHOCYTIC LEUKAEMIA
     Dosage: 1-7 EVERY 28 DAys
     Route: 048
     Dates: start: 20091013, end: 20091016

REACTIONS (4)
  - Haemophilus infection [None]
  - Pyrexia [None]
  - Cough [None]
  - Dyspnoea [None]
